FAERS Safety Report 12487520 (Version 1)
Quarter: 2016Q2

REPORT INFORMATION
  Report Type: Spontaneous
  Country: GB (occurrence: GB)
  Receive Date: 20160622
  Receipt Date: 20160622
  Transmission Date: 20160815
  Serious: Yes (Hospitalization)
  Sender: FDA-Public Use
  Company Number: GB-ACCORD-041570

PATIENT
  Sex: Male

DRUGS (13)
  1. INSULATARD PORCINE [Concomitant]
  2. SALBUTAMOL [Concomitant]
     Active Substance: ALBUTEROL
  3. BENDROFLUMETHIAZIDE [Concomitant]
     Active Substance: BENDROFLUMETHIAZIDE
  4. BISOPROLOL [Concomitant]
     Active Substance: BISOPROLOL
  5. HALOPERIDOL. [Concomitant]
     Active Substance: HALOPERIDOL
  6. RANITIDINE. [Concomitant]
     Active Substance: RANITIDINE
  7. AMITRIPTYLINE [Suspect]
     Active Substance: AMITRIPTYLINE
     Indication: PRODUCT USED FOR UNKNOWN INDICATION
     Route: 048
  8. SERETIDE [Concomitant]
     Active Substance: FLUTICASONE PROPIONATE\SALMETEROL XINAFOATE
  9. LISINOPRIL. [Concomitant]
     Active Substance: LISINOPRIL
  10. IRON [Concomitant]
     Active Substance: IRON
  11. ATORVASTATIN [Concomitant]
     Active Substance: ATORVASTATIN
  12. DABIGATRAN/DABIGATRAN ETEXILATE [Concomitant]
  13. OXYBUTYNIN [Concomitant]
     Active Substance: OXYBUTYNIN

REACTIONS (1)
  - Unresponsive to stimuli [Recovered/Resolved]
